FAERS Safety Report 5118432-5 (Version None)
Quarter: 2006Q3

REPORT INFORMATION
  Report Type: 
  Country: None (occurrence: None)
  Receive Date: 20060926
  Receipt Date: 20060918
  Transmission Date: 20061208
  Serious: Yes (Death, Hospitalization)
  Sender: FDA-Public Use
  Company Number: US200603002420

PATIENT
  Age: 44 Year
  Sex: Female
  Weight: 59 kg

DRUGS (3)
  1. ZYPREXA [Suspect]
     Indication: MENTAL DISORDER
     Dates: start: 20010101, end: 20030101
  2. LITHIUM (LITHIUM) [Concomitant]
  3. WELLBUTRIN [Concomitant]

REACTIONS (3)
  - DIABETES MELLITUS [None]
  - GASTROINTESTINAL HAEMORRHAGE [None]
  - ULCER HAEMORRHAGE [None]
